FAERS Safety Report 8014859-2 (Version None)
Quarter: 2011Q4

REPORT INFORMATION
  Report Type: 
  Country: None (occurrence: None)
  Receive Date: 20111229
  Receipt Date: 20111221
  Transmission Date: 20120403
  Serious: Yes (Other)
  Sender: FDA-Public Use
  Company Number: MW-ABBOTT-11P-100-0885806-00

PATIENT

DRUGS (2)
  1. COTRIM [Concomitant]
     Indication: PRODUCT USED FOR UNKNOWN INDICATION
     Dates: start: 20080108
  2. LOPINAVIR/RITONAVIR [Suspect]
     Indication: HIV INFECTION
     Route: 048

REACTIONS (2)
  - SEPSIS [None]
  - MALARIA [None]
